FAERS Safety Report 13949915 (Version 1)
Quarter: 2017Q3

REPORT INFORMATION
  Report Type: Spontaneous
  Country: US (occurrence: US)
  Receive Date: 20170908
  Receipt Date: 20170908
  Transmission Date: 20171128
  Serious: No
  Sender: FDA-Public Use
  Company Number: US-ROCHE-1135738

PATIENT
  Sex: Female

DRUGS (14)
  1. PROCRIT [Concomitant]
     Active Substance: ERYTHROPOIETIN
     Dosage: 40,000 UNITS
     Route: 058
     Dates: start: 20020111
  2. EPO [Concomitant]
     Active Substance: ERYTHROPOIETIN
     Dosage: 30 K
     Route: 065
     Dates: start: 20020311
  3. BENADRYL [Concomitant]
     Active Substance: DIPHENHYDRAMINE HYDROCHLORIDE
     Route: 048
     Dates: start: 20020311
  4. RITUXAN [Suspect]
     Active Substance: RITUXIMAB
     Indication: CHRONIC LYMPHOCYTIC LEUKAEMIA
     Dosage: 100 MG IN 100 CC OVER 25 MG/HOUR
     Route: 050
     Dates: start: 20020311
  5. PROCRIT [Concomitant]
     Active Substance: ERYTHROPOIETIN
     Dosage: 40 KU
     Route: 058
     Dates: start: 20020201
  6. PROCRIT [Concomitant]
     Active Substance: ERYTHROPOIETIN
     Dosage: 40 KU
     Route: 058
     Dates: start: 20020118
  7. PROCRIT [Concomitant]
     Active Substance: ERYTHROPOIETIN
     Dosage: 40 KU
     Route: 058
     Dates: start: 20020118
  8. PROCRIT [Concomitant]
     Active Substance: ERYTHROPOIETIN
     Dosage: 40,000 UNITS
     Route: 058
     Dates: start: 20020125
  9. KEFLEX [Concomitant]
     Active Substance: CEPHALEXIN
  10. PROCRIT [Concomitant]
     Active Substance: ERYTHROPOIETIN
     Dosage: 30,000 UNITS
     Route: 058
     Dates: start: 20020104
  11. PROCRIT [Concomitant]
     Active Substance: ERYTHROPOIETIN
     Dosage: 30,000 UNITS
     Route: 058
     Dates: start: 20011228
  12. PROCRIT [Concomitant]
     Active Substance: ERYTHROPOIETIN
     Dosage: 30 KU
     Route: 058
     Dates: start: 20020222
  13. PROCRIT [Concomitant]
     Active Substance: ERYTHROPOIETIN
     Dosage: 30,000 UNITS
     Route: 058
     Dates: start: 20011221
  14. PROCRIT [Concomitant]
     Active Substance: ERYTHROPOIETIN
     Dosage: 30 KU
     Route: 058
     Dates: start: 20020215

REACTIONS (2)
  - Back pain [Unknown]
  - Chills [Unknown]
